FAERS Safety Report 7152627-4 (Version None)
Quarter: 2010Q4

REPORT INFORMATION
  Report Type: 
  Country: None (occurrence: None)
  Receive Date: 20101209
  Receipt Date: 20101209
  Transmission Date: 20110411
  Serious: Yes (Hospitalization)
  Sender: FDA-Public Use
  Company Number: None

PATIENT
  Sex: Male
  Weight: 98.4306 kg

DRUGS (20)
  1. TAXOTERE [Suspect]
     Indication: PROSTATE CANCER
     Dosage: 165MG IVBP
     Route: 042
     Dates: start: 20101101, end: 20101201
  2. BEVACIZUMAB 15MG/KG [Suspect]
     Indication: PROSTATE CANCER
     Dosage: 1486 MG IVBP
     Route: 042
     Dates: start: 20101101, end: 20101201
  3. RAD001 2.5 MG [Suspect]
     Indication: PROSTATE CANCER
     Dosage: RAD001 2.5MG PO
     Route: 048
     Dates: start: 20101102, end: 20101205
  4. JANUVIA [Concomitant]
  5. CLARITIN-D [Concomitant]
  6. ASPIRIN [Concomitant]
  7. NORVASC [Concomitant]
  8. LUPRON [Concomitant]
  9. COSAMINE [Concomitant]
  10. AVALIDE [Concomitant]
  11. CIALIS [Concomitant]
  12. VIAGRA [Concomitant]
  13. AMBIEN [Concomitant]
  14. SENNA [Concomitant]
  15. LANTUS [Concomitant]
  16. TYLENOL-500 [Concomitant]
  17. DECADRON [Concomitant]
  18. COMPAZINE [Concomitant]
  19. ZOFRAN [Concomitant]
  20. MMX [Concomitant]

REACTIONS (4)
  - CHILLS [None]
  - COUGH [None]
  - DYSPNOEA [None]
  - PYREXIA [None]
